FAERS Safety Report 6790733-4 (Version None)
Quarter: 2010Q2

REPORT INFORMATION
  Report Type: 
  Country: None (occurrence: None)
  Receive Date: 20100624
  Receipt Date: 20100617
  Transmission Date: 20101027
  Serious: Yes (Other)
  Sender: FDA-Public Use
  Company Number: B0644314A

PATIENT
  Age: 52 Year
  Sex: Female
  Weight: 82.7 kg

DRUGS (2)
  1. ALLI [Suspect]
     Indication: WEIGHT CONTROL
     Route: 048
     Dates: start: 20100101, end: 20100225
  2. AMPICILLIN SODIUM/SULBACTAM SODIUM [Concomitant]
     Indication: CYSTITIS
     Route: 048
     Dates: start: 20100208, end: 20100214

REACTIONS (7)
  - ABDOMINAL PAIN UPPER [None]
  - DECREASED APPETITE [None]
  - FATIGUE [None]
  - HEPATITIS [None]
  - LETHARGY [None]
  - LIVER FUNCTION TEST ABNORMAL [None]
  - PRURITUS GENERALISED [None]
